FAERS Safety Report 9526900 (Version 1)
Quarter: 2013Q1

REPORT INFORMATION
  Report Type: Spontaneous
  Country: US (occurrence: None)
  Receive Date: 20130311
  Receipt Date: 20130311
  Transmission Date: 20140127
  Serious: No
  Sender: FDA-Public Use
  Company Number: 1301USA007888

PATIENT
  Age: 34 Year
  Sex: Female

DRUGS (2)
  1. ZIOPTAN (TAFLUPROST) EYE DROPS, SOLUTION, 0.0015% [Suspect]
     Indication: INTRAOCULAR PRESSURE INCREASED
  2. ABILIFY (ARIPIPRAZOLE) [Concomitant]

REACTIONS (2)
  - Abnormal sensation in eye [None]
  - Drug dose omission [None]
